FAERS Safety Report 6371404-5 (Version None)
Quarter: 2009Q3

REPORT INFORMATION
  Report Type: 
  Country: None (occurrence: None)
  Receive Date: 20090923
  Receipt Date: 20071221
  Transmission Date: 20100115
  Serious: Yes (Other)
  Sender: FDA-Public Use
  Company Number: US-ASTRAZENECA-2007UW09639

PATIENT
  Age: 40 Year
  Sex: Male
  Weight: 119.7 kg

DRUGS (14)
  1. SEROQUEL [Suspect]
     Indication: DEPRESSION
     Route: 048
     Dates: start: 20040901, end: 20050101
  2. SEROQUEL [Suspect]
     Dosage: 25 TO 50 MG
     Route: 048
     Dates: start: 20050118
  3. RISPERDAL [Concomitant]
     Dates: end: 20050101
  4. ZYPREXA [Concomitant]
     Route: 048
     Dates: start: 20040917
  5. HYZAAR [Concomitant]
     Indication: BLOOD PRESSURE
     Dosage: 100/25 EVERYDAY
     Route: 048
     Dates: start: 20041005
  6. LEXAPRO [Concomitant]
     Dosage: 10 TO 20 MG
     Route: 048
     Dates: start: 20041214
  7. PEG-INTRON [Concomitant]
     Route: 048
  8. HYDROCODONE [Concomitant]
     Dosage: AS REQUIRED
     Route: 048
     Dates: start: 20031201
  9. CLONIDINE [Concomitant]
     Indication: BLOOD PRESSURE
     Dosage: 0.1 TO 2.5 MG, FLUCTUATING
     Route: 048
     Dates: start: 20030307
  10. ASPIRIN [Concomitant]
     Dosage: 81 TO 325 MG
     Route: 048
     Dates: start: 20060930
  11. RIBAVIRIN [Concomitant]
     Indication: HEPATITIS C
     Dosage: 600 MG IN A.M AND 800 MG IN P.M
     Route: 048
     Dates: start: 20041215
  12. METOPROLOL TARTRATE [Concomitant]
     Dosage: 25 TO 50 MG
     Route: 048
     Dates: start: 20030703
  13. PAXIL CR [Concomitant]
     Route: 048
     Dates: start: 20050226
  14. FERROUS SULFATE TAB [Concomitant]
     Route: 048
     Dates: start: 20040803

REACTIONS (7)
  - DIABETES MELLITUS [None]
  - DIABETES MELLITUS INADEQUATE CONTROL [None]
  - GLUCOSE TOLERANCE IMPAIRED [None]
  - PANCREATITIS ACUTE [None]
  - SUICIDAL IDEATION [None]
  - TYPE 2 DIABETES MELLITUS [None]
  - WEIGHT INCREASED [None]
